FAERS Safety Report 20728670 (Version 2)
Quarter: 2022Q4

REPORT INFORMATION
  Report Type: Spontaneous
  Country: US (occurrence: US)
  Receive Date: 20220420
  Receipt Date: 20221230
  Transmission Date: 20230113
  Serious: Yes (Other)
  Sender: FDA-Public Use
  Company Number: US-BRISTOL-MYERS SQUIBB COMPANY-2022-021473

PATIENT
  Age: 66 Year
  Sex: Female

DRUGS (3)
  1. POMALYST [Suspect]
     Active Substance: POMALIDOMIDE
     Indication: Plasma cell myeloma
     Dosage: TAKE ONE CAPSULE BY MOUTH EVERYDAY ONCE ON DAY 1-21 EVERY 28 DAYS
     Route: 048
     Dates: start: 20220131
  2. DEXAMETHASONE [Suspect]
     Active Substance: DEXAMETHASONE
     Indication: Product used for unknown indication
  3. KYPROLIS [Suspect]
     Active Substance: CARFILZOMIB
     Indication: Product used for unknown indication

REACTIONS (1)
  - Plasma cell myeloma [Unknown]
